FAERS Safety Report 12912662 (Version 1)
Quarter: 2016Q4

REPORT INFORMATION
  Report Type: Spontaneous
  Country: US (occurrence: US)
  Receive Date: 20161104
  Receipt Date: 20161104
  Transmission Date: 20170207
  Serious: Yes (Life-Threatening, Hospitalization, Other)
  Sender: FDA-Public Use
  Company Number: US-TEVA-709354USA

PATIENT
  Age: 51 Year
  Sex: Female
  Weight: 54.48 kg

DRUGS (2)
  1. CLONAZEPAM. [Suspect]
     Active Substance: CLONAZEPAM
     Indication: RESTLESS LEGS SYNDROME
     Route: 065
     Dates: end: 20160817
  2. XANAX [Concomitant]
     Active Substance: ALPRAZOLAM

REACTIONS (7)
  - Apparent life threatening event [Recovered/Resolved]
  - Vomiting [Recovering/Resolving]
  - Adverse event [Recovering/Resolving]
  - Withdrawal syndrome [Recovering/Resolving]
  - Product use issue [Unknown]
  - Incontinence [Recovering/Resolving]
  - Mania [Recovered/Resolved]

NARRATIVE: CASE EVENT DATE: 201311
